FAERS Safety Report 5363008-8 (Version None)
Quarter: 2007Q2

REPORT INFORMATION
  Report Type: 
  Country: None (occurrence: None)
  Receive Date: 20070615
  Receipt Date: 20070604
  Transmission Date: 20071010
  Serious: Yes (Hospitalization)
  Sender: FDA-Public Use
  Company Number: GXKR2007FR04904

PATIENT

DRUGS (2)
  1. METOCLOPRAMIDE (NGX)(METOCLOPRAMIDE) UNKNOWN [Suspect]
  2. FLUOXETINE [Suspect]

REACTIONS (1)
  - YAWNING [None]
